FAERS Safety Report 14320532 (Version 1)
Quarter: 2017Q4

REPORT INFORMATION
  Report Type: Spontaneous
  Country: US (occurrence: US)
  Receive Date: 20171222
  Receipt Date: 20171222
  Transmission Date: 20180321
  Serious: Yes (Other)
  Sender: FDA-Public Use
  Company Number: None

PATIENT
  Age: 28 Year
  Sex: Female
  Weight: 57.6 kg

DRUGS (2)
  1. CONCERTA [Suspect]
     Active Substance: METHYLPHENIDATE HYDROCHLORIDE
     Indication: ATTENTION DEFICIT/HYPERACTIVITY DISORDER
     Dosage: ?          QUANTITY:30 CAPSULE(S);?
     Route: 048
     Dates: start: 20171219, end: 20171222
  2. BIOTIN [Concomitant]
     Active Substance: BIOTIN

REACTIONS (6)
  - Head injury [None]
  - Initial insomnia [None]
  - Middle insomnia [None]
  - Product substitution issue [None]
  - Contusion [None]
  - Somnambulism [None]

NARRATIVE: CASE EVENT DATE: 20171222
